FAERS Safety Report 9718766 (Version 1)
Quarter: 2013Q4

REPORT INFORMATION
  Report Type: Not Available
  Country: US (occurrence: US)
  Receive Date: 20131125
  Receipt Date: 20131125
  Transmission Date: 20140711
  Serious: No
  Sender: FDA-Public Use
  Company Number: US-H. LUNDBECK A/S-DKLU1094631

PATIENT
  Sex: Female

DRUGS (3)
  1. ONFI [Suspect]
     Indication: EPILEPSY
     Route: 048
  2. ONFI [Suspect]
     Route: 048
  3. ONFI [Suspect]
     Route: 048

REACTIONS (4)
  - Eye pain [Not Recovered/Not Resolved]
  - Headache [Not Recovered/Not Resolved]
  - Lethargy [Not Recovered/Not Resolved]
  - Dysarthria [Not Recovered/Not Resolved]
